FAERS Safety Report 13563066 (Version 1)
Quarter: 2017Q2

REPORT INFORMATION
  Report Type: Spontaneous
  Country: US (occurrence: US)
  Receive Date: 20170519
  Receipt Date: 20170519
  Transmission Date: 20170830
  Serious: No
  Sender: FDA-Public Use
  Company Number: US-MYLANLABS-2016M1029384

PATIENT
  Age: 22 Year
  Sex: Female
  Weight: 70.3 kg

DRUGS (1)
  1. ACEBUTOLOL [Suspect]
     Active Substance: ACEBUTOLOL
     Indication: HEART RATE IRREGULAR
     Dosage: 200 MG, BID
     Route: 048
     Dates: start: 20160708

REACTIONS (1)
  - Drug effect decreased [Not Recovered/Not Resolved]

NARRATIVE: CASE EVENT DATE: 20160708
